FAERS Safety Report 4873130-8 (Version None)
Quarter: 2006Q1

REPORT INFORMATION
  Report Type: 
  Country: None (occurrence: None)
  Receive Date: 20060105
  Receipt Date: 20051229
  Transmission Date: 20060701
  Serious: Yes (Hospitalization, Other)
  Sender: FDA-Public Use
  Company Number: 200512777BWH

PATIENT
  Age: 89 Year
  Sex: Female

DRUGS (4)
  1. DIGOXIN [Suspect]
     Indication: ATRIAL FIBRILLATION
     Route: 065
  2. COUMADIN [Suspect]
     Indication: ATRIAL FIBRILLATION
     Route: 065
  3. LASIX [Suspect]
     Route: 065
  4. AVELOX [Suspect]
     Route: 048

REACTIONS (4)
  - BLOOD AMYLASE INCREASED [None]
  - HEPATIC ENZYME INCREASED [None]
  - JAUNDICE [None]
  - PANCREATITIS [None]
